FAERS Safety Report 10133965 (Version 2)
Quarter: 2014Q2

REPORT INFORMATION
  Report Type: Report from Study
  Country: CA (occurrence: CA)
  Receive Date: 20140428
  Receipt Date: 20140428
  Transmission Date: 20141212
  Serious: Yes (Other)
  Sender: FDA-Public Use
  Company Number: CA-ABBVIE-14P-028-1221528-00

PATIENT
  Age: 22 Year
  Sex: Male

DRUGS (2)
  1. HUMIRA [Suspect]
     Indication: CROHN^S DISEASE
     Dosage: LAST DOSE: 25-MAR-2014
     Route: 058
     Dates: start: 20130830, end: 20140318
  2. HUMIRA [Suspect]
     Route: 058
     Dates: start: 20140408

REACTIONS (2)
  - Tendon rupture [Recovering/Resolving]
  - Thrombosis [Unknown]
